FAERS Safety Report 22979753 (Version 4)
Quarter: 2023Q4

REPORT INFORMATION
  Report Type: Spontaneous
  Country: US (occurrence: US)
  Receive Date: 20230925
  Receipt Date: 20231218
  Transmission Date: 20240110
  Serious: Yes (Other)
  Sender: FDA-Public Use
  Company Number: US-PFIZER INC-PV202300159171

PATIENT
  Age: 83 Year
  Sex: Female
  Weight: 78.912 kg

DRUGS (2)
  1. IBRANCE [Suspect]
     Active Substance: PALBOCICLIB
     Indication: Endometrial cancer
     Dosage: 100 MG
  2. IBRANCE [Suspect]
     Active Substance: PALBOCICLIB
     Dosage: 75 MG, CYCLIC (TAKE 75 MG DAILY FOR THREE WEEKS, THEN HOLD FOR ONE WEEK, THEN RESTART)

REACTIONS (7)
  - Lyme disease [Unknown]
  - Staphylococcal bacteraemia [Unknown]
  - Human anaplasmosis [Unknown]
  - Infection [Unknown]
  - Neutrophil count decreased [Unknown]
  - Illness [Unknown]
  - Off label use [Unknown]

NARRATIVE: CASE EVENT DATE: 20230701
